FAERS Safety Report 14638024 (Version 1)
Quarter: 2018Q1

REPORT INFORMATION
  Report Type: Spontaneous
  Country: US (occurrence: US)
  Receive Date: 20180314
  Receipt Date: 20180314
  Transmission Date: 20180509
  Serious: No
  Sender: FDA-Public Use
  Company Number: US-VYERA PHARMACEUTICALS, LLC-2017VYE00055

PATIENT
  Sex: Female
  Weight: 74.38 kg

DRUGS (3)
  1. UNSPECIFIED MEDICATIONS [Concomitant]
     Active Substance: UNSPECIFIED INGREDIENT
  2. DARAPRIM [Suspect]
     Active Substance: PYRIMETHAMINE
     Indication: TOXOPLASMOSIS
     Dosage: 75 MG, 1X/DAY
     Route: 048
     Dates: start: 201608
  3. LEUCOVORIN. [Concomitant]
     Active Substance: LEUCOVORIN

REACTIONS (1)
  - Drug ineffective [Not Recovered/Not Resolved]
